FAERS Safety Report 8397197-8 (Version None)
Quarter: 2012Q2

REPORT INFORMATION
  Report Type: 
  Country: None (occurrence: None)
  Receive Date: 20120530
  Receipt Date: 20120524
  Transmission Date: 20120825
  Serious: Yes (Hospitalization)
  Sender: FDA-Public Use
  Company Number: JP-MERCK-1112USA00682

PATIENT
  Age: 67 Year
  Sex: Female
  Weight: 56 kg

DRUGS (6)
  1. CALBLOCK [Suspect]
     Indication: HYPERTENSION
     Route: 048
     Dates: start: 20090219, end: 20111103
  2. LEVEMIR [Suspect]
     Indication: TYPE 2 DIABETES MELLITUS
     Route: 058
     Dates: start: 20080502, end: 20111112
  3. CRESTOR [Suspect]
     Indication: DYSLIPIDAEMIA
     Dosage: DOSE UNKNOWN (INTENSIVE INSULIN THERAPY)
     Route: 048
     Dates: start: 20080514, end: 20111103
  4. JANUVIA [Suspect]
     Indication: TYPE 2 DIABETES MELLITUS
     Route: 048
     Dates: start: 20111021, end: 20111103
  5. OLMESARTAN MEDOXOMIL [Suspect]
     Indication: HYPERTENSION
     Route: 048
     Dates: start: 20080512, end: 20111103
  6. NOVORAPID [Suspect]
     Indication: TYPE 2 DIABETES MELLITUS
     Route: 058
     Dates: start: 20080502, end: 20111112

REACTIONS (2)
  - ATRIAL FIBRILLATION [None]
  - DRUG ERUPTION [None]
